FAERS Safety Report 6128352-5 (Version None)
Quarter: 2009Q1

REPORT INFORMATION
  Report Type: 
  Country: None (occurrence: None)
  Receive Date: 20090323
  Receipt Date: 20090318
  Transmission Date: 20090719
  Serious: Yes (Other)
  Sender: FDA-Public Use
  Company Number: B0565497A

PATIENT
  Age: 55 Year
  Sex: Female

DRUGS (4)
  1. SERETIDE [Suspect]
     Indication: ASTHMA
     Dosage: 2PUFF TWICE PER DAY
     Route: 055
     Dates: start: 20070101
  2. VENTOLIN [Suspect]
     Indication: ASTHMA
     Route: 055
  3. AMLODIPINE [Suspect]
     Indication: HYPERTENSION
     Dosage: 10MG PER DAY
  4. LISINOPRIL [Suspect]
     Indication: HYPERTENSION
     Dosage: 10MG PER DAY
     Route: 065

REACTIONS (1)
  - ANKLE FRACTURE [None]
